FAERS Safety Report 9793457 (Version 2)
Quarter: 2014Q1

REPORT INFORMATION
  Report Type: Spontaneous
  Country: US (occurrence: US)
  Receive Date: 20140102
  Receipt Date: 20140203
  Transmission Date: 20141002
  Serious: No
  Sender: FDA-Public Use
  Company Number: US-AMGEN-USASP2013085058

PATIENT
  Age: 55 Year
  Sex: Female

DRUGS (2)
  1. ENBREL [Suspect]
     Indication: RHEUMATOID ARTHRITIS
     Dosage: 50 MG, QWK
     Route: 065
     Dates: start: 20131009, end: 20140103
  2. LEFLUNOMIDE [Concomitant]
     Dosage: UNK

REACTIONS (12)
  - Asthenia [Not Recovered/Not Resolved]
  - Dyspnoea [Recovered/Resolved]
  - Condition aggravated [Not Recovered/Not Resolved]
  - Joint swelling [Not Recovered/Not Resolved]
  - Injection site pain [Recovered/Resolved]
  - Injection site swelling [Not Recovered/Not Resolved]
  - Injection site reaction [Not Recovered/Not Resolved]
  - Injection site warmth [Not Recovered/Not Resolved]
  - Injection site pruritus [Not Recovered/Not Resolved]
  - Injection site erythema [Not Recovered/Not Resolved]
  - Injection site haemorrhage [Recovered/Resolved]
  - Injection site urticaria [Recovered/Resolved]
